FAERS Safety Report 5626321-2 (Version None)
Quarter: 2008Q1

REPORT INFORMATION
  Report Type: 
  Country: None (occurrence: None)
  Receive Date: 20080214
  Receipt Date: 20080205
  Transmission Date: 20080703
  Serious: Yes (Hospitalization)
  Sender: FDA-Public Use
  Company Number: ES-ELI_LILLY_AND_COMPANY-ES200802001092

PATIENT
  Age: 78 Year
  Sex: Female

DRUGS (4)
  1. FORTEO [Suspect]
     Indication: OSTEOPOROSIS
     Dosage: 20 UG, UNKNOWN
     Route: 058
     Dates: start: 20070914
  2. XICIL [Concomitant]
     Indication: OSTEOARTHRITIS
     Dosage: UNK, UNKNOWN
     Route: 065
  3. NATECAL D [Concomitant]
     Dosage: UNK, UNKNOWN
     Route: 065
  4. CITALOPRAM HYDROBROMIDE [Concomitant]
     Indication: DEPRESSION
     Dosage: UNK, UNKNOWN
     Route: 065

REACTIONS (2)
  - ABDOMINAL PAIN UPPER [None]
  - HERNIA OBSTRUCTIVE [None]
